FAERS Safety Report 6544510-X (Version None)
Quarter: 2010Q1

REPORT INFORMATION
  Report Type: 
  Country: None (occurrence: None)
  Receive Date: 20100120
  Receipt Date: 20100120
  Transmission Date: 20100710
  Serious: Yes (Hospitalization)
  Sender: FDA-Public Use
  Company Number: None

PATIENT
  Age: 17 Year
  Sex: Female
  Weight: 81.6475 kg

DRUGS (1)
  1. YAZ [Suspect]
     Indication: MENSTRUATION IRREGULAR
     Dosage: 30 DAILY PO
     Route: 048
     Dates: start: 20060701, end: 20070131

REACTIONS (2)
  - GALLBLADDER DISORDER [None]
  - GASTROINTESTINAL DISORDER [None]
